FAERS Safety Report 5361340-5 (Version None)
Quarter: 2007Q2

REPORT INFORMATION
  Report Type: 
  Country: None (occurrence: None)
  Receive Date: 20070530
  Receipt Date: 20070126
  Transmission Date: 20071010
  Serious: No
  Sender: FDA-Public Use
  Company Number: 2006PV025966

PATIENT
  Age: 60 Year
  Sex: Female
  Weight: 115.2136 kg

DRUGS (11)
  1. BYETTA [Suspect]
     Indication: DIABETES MELLITUS NON-INSULIN-DEPENDENT
     Dosage: 10 MCG;BID;SC ; 5 MCG;BID;SC
     Route: 058
     Dates: start: 20061107, end: 20070103
  2. BYETTA [Suspect]
     Indication: DIABETES MELLITUS NON-INSULIN-DEPENDENT
     Dosage: 10 MCG;BID;SC ; 5 MCG;BID;SC
     Route: 058
     Dates: start: 20070104
  3. BYETTA [Suspect]
  4. GLUCOPHAGE [Suspect]
     Indication: DRUG USE FOR UNKNOWN INDICATION
     Dosage: 500 MG;QD ; 1000 MG; QD ; 500 MG;QD
     Dates: start: 20061101, end: 20061101
  5. GLUCOPHAGE [Suspect]
     Indication: DRUG USE FOR UNKNOWN INDICATION
     Dosage: 500 MG;QD ; 1000 MG; QD ; 500 MG;QD
     Dates: end: 20061101
  6. GLUCOPHAGE [Suspect]
     Indication: DRUG USE FOR UNKNOWN INDICATION
     Dosage: 500 MG;QD ; 1000 MG; QD ; 500 MG;QD
     Dates: start: 20061101
  7. GLUCOTROL [Suspect]
     Indication: DRUG USE FOR UNKNOWN INDICATION
     Dosage: PO
     Route: 048
  8. METFORMIN HCL [Suspect]
     Indication: DRUG USE FOR UNKNOWN INDICATION
     Dosage: 500 MG;PO ; 1000 MG;PO
     Route: 048
     Dates: start: 20061114, end: 20061116
  9. METFORMIN HCL [Suspect]
     Indication: DRUG USE FOR UNKNOWN INDICATION
     Dosage: 500 MG;PO ; 1000 MG;PO
     Route: 048
     Dates: start: 20061117
  10. PRANIDIN [Concomitant]
  11. ASPIRIN [Concomitant]

REACTIONS (7)
  - DIARRHOEA [None]
  - FAECES DISCOLOURED [None]
  - GASTROOESOPHAGEAL REFLUX DISEASE [None]
  - HEADACHE [None]
  - INFLUENZA LIKE ILLNESS [None]
  - INJECTION SITE HAEMORRHAGE [None]
  - SKIN HAEMORRHAGE [None]
